FAERS Safety Report 7745856-X (Version None)
Quarter: 2011Q3

REPORT INFORMATION
  Report Type: 
  Country: None (occurrence: None)
  Receive Date: 20110831
  Receipt Date: 20110823
  Transmission Date: 20111222
  Serious: Yes (Other)
  Sender: FDA-Public Use
  Company Number: 2011SP018003

PATIENT
  Age: 43 Year
  Sex: Male
  Weight: 85 kg

DRUGS (2)
  1. PEG-INTRON [Suspect]
     Indication: HEPATITIS C
     Dosage: 150 MG, SC
     Route: 058
     Dates: start: 20100401, end: 20110301
  2. RIBAVIRIN [Suspect]
     Indication: HEPATITIS C
     Dosage: 1200 MG, QD, PO
     Route: 048
     Dates: start: 20100401, end: 20110301

REACTIONS (3)
  - PRODUCT QUALITY ISSUE [None]
  - HEPATIC CIRRHOSIS [None]
  - PORTAL HYPERTENSION [None]
